FAERS Safety Report 9146733 (Version 1)
Quarter: 2013Q1

REPORT INFORMATION
  Report Type: Spontaneous
  Country: US (occurrence: US)
  Receive Date: 20130307
  Receipt Date: 20130307
  Transmission Date: 20140127
  Serious: Yes (Congenital Anomaly, Other)
  Sender: FDA-Public Use
  Company Number: US-ABBOTT-13P-163-1056779-00

PATIENT
  Sex: Male

DRUGS (2)
  1. LEVOTHYROXINE [Suspect]
     Indication: MATERNAL EXPOSURE TIMING UNSPECIFIED
  2. MULTIVITAMIN [Suspect]
     Indication: MATERNAL EXPOSURE TIMING UNSPECIFIED

REACTIONS (23)
  - Limb reduction defect [Unknown]
  - Petechiae [Unknown]
  - Purpura [Unknown]
  - Body height below normal [Unknown]
  - Brachycephaly [Unknown]
  - Hypertelorism of orbit [Unknown]
  - Low set ears [Unknown]
  - Congenital anomaly [Unknown]
  - Cardiac murmur [Unknown]
  - Lymphoedema [Unknown]
  - Umbilical haemorrhage [Unknown]
  - Thrombocytopenia [Unknown]
  - Congenital musculoskeletal anomaly [Unknown]
  - Atrial septal defect [Unknown]
  - Atrial septal defect [Unknown]
  - Patent ductus arteriosus [Unknown]
  - Ventricular septal defect [Unknown]
  - Ventricular hypertrophy [Unknown]
  - Tricuspid valve incompetence [Unknown]
  - Pulmonary valve stenosis congenital [Unknown]
  - Thrombocytopenia-absent radius syndrome [Unknown]
  - Foetal growth restriction [Unknown]
  - Foetal exposure during pregnancy [Unknown]
